FAERS Safety Report 11387622 (Version 1)
Quarter: 2015Q3

REPORT INFORMATION
  Report Type: Spontaneous
  Country: DK (occurrence: DK)
  Receive Date: 20150817
  Receipt Date: 20150817
  Transmission Date: 20151125
  Serious: Yes (Hospitalization)
  Sender: FDA-Public Use
  Company Number: DK-NOVOPROD-459670

PATIENT
  Age: 14 Year
  Sex: Female

DRUGS (1)
  1. NORDITROPIN [Suspect]
     Active Substance: SOMATROPIN
     Indication: GROWTH HORMONE DEFICIENCY
     Dosage: 10 MG/1,5 ML PEN TYPE
     Route: 058
     Dates: start: 20110501, end: 20120627

REACTIONS (1)
  - Bladder cancer [Unknown]

NARRATIVE: CASE EVENT DATE: 20120601
